FAERS Safety Report 7971025-4 (Version None)
Quarter: 2011Q4

REPORT INFORMATION
  Report Type: 
  Country: None (occurrence: None)
  Receive Date: 20111212
  Receipt Date: 20111212
  Transmission Date: 20120403
  Serious: Yes (Hospitalization)
  Sender: FDA-Public Use
  Company Number: None

PATIENT
  Age: 81 Year
  Sex: Male

DRUGS (2)
  1. AZITHROMYCIN [Suspect]
     Indication: PNEUMONIA
     Dosage: 500 MG
     Route: 042
     Dates: start: 20110625, end: 20110628
  2. CEFTRIAXONE [Concomitant]
     Indication: PNEUMONIA
     Dosage: 1000 MG
     Route: 042
     Dates: start: 20110625, end: 20110628

REACTIONS (1)
  - PSEUDOMEMBRANOUS COLITIS [None]
